FAERS Safety Report 7024147-9 (Version None)
Quarter: 2010Q4

REPORT INFORMATION
  Report Type: 
  Country: None (occurrence: None)
  Receive Date: 20101001
  Receipt Date: 20100921
  Transmission Date: 20110411
  Serious: Yes (Death)
  Sender: FDA-Public Use
  Company Number: US-ELI_LILLY_AND_COMPANY-US201009005951

PATIENT

DRUGS (3)
  1. GEMZAR [Suspect]
     Indication: TRANSITIONAL CELL CARCINOMA
     Dosage: 1000 MG/M2, OTHER
     Route: 042
  2. CISPLATIN [Concomitant]
     Dosage: 70 MG/M2, OTHER
     Route: 042
  3. SUNITINIB MALATE [Concomitant]
     Dosage: 37.5 MG, OTHER
     Route: 048

REACTIONS (1)
  - SEPSIS [None]
